FAERS Safety Report 21917399 (Version 1)
Quarter: 2023Q1

REPORT INFORMATION
  Report Type: Report from Study
  Country: MX (occurrence: MX)
  Receive Date: 20230126
  Receipt Date: 20230126
  Transmission Date: 20230418
  Serious: Yes (Life-Threatening, Hospitalization)
  Sender: FDA-Public Use
  Company Number: MX-JNJFOC-20230145036

PATIENT
  Age: 71 Year
  Sex: Male
  Weight: 52.5 kg

DRUGS (3)
  1. ABIRATERONE ACETATE [Suspect]
     Active Substance: ABIRATERONE ACETATE
     Indication: Hormone-dependent prostate cancer
     Dosage: LAST DOSE OF BEFORE EVENT WAS ON 09-AUG-2022
     Route: 048
     Dates: start: 20220728
  2. ABEMACICLIB [Suspect]
     Active Substance: ABEMACICLIB
     Indication: Hormone-dependent prostate cancer
     Dosage: LAST DOSE OF BEFORE EVENT WAS ON 10-AUG-2022
     Route: 065
     Dates: start: 20220728, end: 20220912
  3. PREDNISONE [Suspect]
     Active Substance: PREDNISONE
     Indication: Hormone-dependent prostate cancer
     Dosage: LAST DOSE OF BEFORE EVENT WAS ON 10-AUG-2022
     Route: 048

REACTIONS (1)
  - Platelet count decreased [Recovering/Resolving]

NARRATIVE: CASE EVENT DATE: 20220830
